FAERS Safety Report 6382259-7 (Version None)
Quarter: 2009Q3

REPORT INFORMATION
  Report Type: 
  Country: None (occurrence: None)
  Receive Date: 20090928
  Receipt Date: 20090928
  Transmission Date: 20100115
  Serious: Yes (Other)
  Sender: FDA-Public Use
  Company Number: None

PATIENT
  Age: 80 Year
  Sex: Female
  Weight: 67.1324 kg

DRUGS (1)
  1. LEVOTHYROXINE SODIUM [Suspect]
     Dosage: 1 ONCE PER DAY
     Dates: start: 20090912

REACTIONS (8)
  - ASTHENIA [None]
  - CHEST DISCOMFORT [None]
  - CONFUSIONAL STATE [None]
  - HALLUCINATION [None]
  - MALAISE [None]
  - PALPITATIONS [None]
  - PRODUCT SUBSTITUTION ISSUE [None]
  - WHEEZING [None]
